FAERS Safety Report 9341801 (Version 1)
Quarter: 2013Q2

REPORT INFORMATION
  Report Type: Spontaneous
  Country: DZ (occurrence: TN)
  Receive Date: 20130611
  Receipt Date: 20130611
  Transmission Date: 20140414
  Serious: Yes (Other)
  Sender: FDA-Public Use
  Company Number: DZ-ABBOTT-13P-003-1101290-00

PATIENT
  Age: 27 Year
  Sex: Male
  Weight: 70 kg

DRUGS (4)
  1. HUMIRA [Suspect]
     Indication: CROHN^S DISEASE
     Route: 058
     Dates: start: 20130114
  2. HUMIRA [Suspect]
     Indication: ANORECTAL DISORDER
  3. AZATHIOPRINE [Concomitant]
     Indication: CROHN^S DISEASE
     Route: 048
     Dates: start: 201204
  4. AZATHIOPRINE [Concomitant]
     Indication: ANORECTAL DISORDER

REACTIONS (2)
  - Nocturnal dyspnoea [Recovering/Resolving]
  - Chest discomfort [Recovering/Resolving]
